FAERS Safety Report 9563295 (Version 1)
Quarter: 2013Q3

REPORT INFORMATION
  Report Type: Spontaneous
  Country: ES (occurrence: ES)
  Receive Date: 20130927
  Receipt Date: 20130927
  Transmission Date: 20140515
  Serious: Yes (Life-Threatening)
  Sender: FDA-Public Use
  Company Number: ES-VERTEX PHARMACEUTICALS INC-2013-010024

PATIENT
  Age: 45 Year
  Sex: Female

DRUGS (4)
  1. INCIVO [Suspect]
     Indication: CHRONIC HEPATITIS
     Dosage: 1125 MG
     Route: 048
     Dates: start: 20120919, end: 20121213
  2. KIVEXA [Interacting]
     Indication: HIV INFECTION
     Dosage: DOSAGE FORM: UNSPECIFIED
     Route: 048
     Dates: start: 2005, end: 20121228
  3. RIBAVIRIN [Interacting]
     Indication: CHRONIC HEPATITIS
     Dosage: DOSAGE FORM: UNSPECIFIED
     Route: 048
     Dates: start: 20120919, end: 20121228
  4. METFORMIN [Interacting]
     Indication: TYPE 2 DIABETES MELLITUS
     Dosage: DOSAGE FORM: UNSPECIFIED
     Route: 048
     Dates: end: 20121228

REACTIONS (4)
  - Lactic acidosis [Recovered/Resolved]
  - Drug interaction [Recovered/Resolved]
  - Urinary tract infection [Unknown]
  - Off label use [Unknown]
